FAERS Safety Report 7810421-2 (Version None)
Quarter: 2011Q4

REPORT INFORMATION
  Report Type: 
  Country: None (occurrence: None)
  Receive Date: 20111012
  Receipt Date: 20111007
  Transmission Date: 20120403
  Serious: Yes (Hospitalization)
  Sender: FDA-Public Use
  Company Number: JP-MERCK-1110USA00483

PATIENT
  Age: 71 Year
  Sex: Female

DRUGS (4)
  1. FOSAMAX [Suspect]
     Indication: OSTEOPOROSIS
     Route: 048
     Dates: start: 20071201, end: 20110901
  2. ALFAROL [Suspect]
     Indication: OSTEOPOROSIS
     Route: 048
  3. NORVASC [Suspect]
     Indication: HYPERTENSION
     Route: 048
  4. LIPITOR [Suspect]
     Indication: HYPERLIPIDAEMIA
     Route: 048

REACTIONS (1)
  - FEMUR FRACTURE [None]
